FAERS Safety Report 5416645-6 (Version None)
Quarter: 2007Q3

REPORT INFORMATION
  Report Type: 
  Country: None (occurrence: None)
  Receive Date: 20070814
  Receipt Date: 20070806
  Transmission Date: 20080115
  Serious: Yes (Hospitalization)
  Sender: FDA-Public Use
  Company Number: 237538K06USA

PATIENT
  Age: 33 Year
  Sex: Female

DRUGS (6)
  1. REBIF [Suspect]
     Indication: MULTIPLE SCLEROSIS
     Dates: start: 20030101
  2. ZOLOFT [Concomitant]
  3. NEURONTIN [Concomitant]
  4. XANAX [Concomitant]
  5. CALCIUM SUPPLEMENTS (CALCIUM-SANDOZ) [Concomitant]
  6. MULTIVITAMIN [Concomitant]

REACTIONS (3)
  - LABYRINTHITIS [None]
  - MULTIPLE SCLEROSIS RELAPSE [None]
  - VIRAL INFECTION [None]
